FAERS Safety Report 18700749 (Version 1)
Quarter: 2021Q1

REPORT INFORMATION
  Report Type: Spontaneous
  Country: US (occurrence: US)
  Receive Date: 20210105
  Receipt Date: 20210105
  Transmission Date: 20210419
  Serious: No
  Sender: FDA-Public Use
  Company Number: US-ALLERGAN-2010951US

PATIENT
  Age: 28 Year
  Sex: Male

DRUGS (4)
  1. PREDNISOLONE ACETATE, 1.0% [Suspect]
     Active Substance: PREDNISOLONE ACETATE
     Dosage: 4 GTT
     Route: 047
     Dates: start: 20200312, end: 20200319
  2. MOXIFLOXACIN. [Concomitant]
     Active Substance: MOXIFLOXACIN
     Indication: POST PROCEDURAL COMPLICATION
     Dosage: UNK UNK, TID
     Route: 047
     Dates: start: 20200227, end: 20200305
  3. PREDNISOLONE ACETATE, 1.0% [Suspect]
     Active Substance: PREDNISOLONE ACETATE
     Indication: POST PROCEDURAL COMPLICATION
     Dosage: 2 GTT, TID
     Route: 047
     Dates: start: 20200305, end: 20200312
  4. PREDNISOLONE ACETATE, 1.0% [Suspect]
     Active Substance: PREDNISOLONE ACETATE
     Dosage: 2 GTT, QD
     Dates: start: 20200319, end: 20200326

REACTIONS (2)
  - Loss of personal independence in daily activities [Unknown]
  - Vision blurred [Recovered/Resolved]

NARRATIVE: CASE EVENT DATE: 20200305
